FAERS Safety Report 7085905-8 (Version None)
Quarter: 2010Q4

REPORT INFORMATION
  Report Type: 
  Country: None (occurrence: None)
  Receive Date: 20101105
  Receipt Date: 20101101
  Transmission Date: 20110411
  Serious: Yes (Other)
  Sender: FDA-Public Use
  Company Number: BR-SANOFI-AVENTIS-2010SA066811

PATIENT
  Age: 57 Year
  Sex: Male
  Weight: 61 kg

DRUGS (3)
  1. LANTUS [Suspect]
     Route: 058
  2. OPTIPEN [Suspect]
  3. HUMALOG [Concomitant]
     Route: 058

REACTIONS (3)
  - COUGH [None]
  - PNEUMONIA [None]
  - PYREXIA [None]
